FAERS Safety Report 9361426 (Version 1)
Quarter: 2013Q2

REPORT INFORMATION
  Report Type: Report from Study
  Country: BR (occurrence: BR)
  Receive Date: 20130621
  Receipt Date: 20130621
  Transmission Date: 20140414
  Serious: Yes (Congenital Anomaly, Other)
  Sender: FDA-Public Use
  Company Number: BR-ABBOTT-13P-020-1070936-00

PATIENT
  Sex: Male

DRUGS (1)
  1. HUMIRA [Suspect]
     Indication: MATERNAL EXPOSURE TIMING UNSPECIFIED
     Route: 064

REACTIONS (5)
  - Congenital renal disorder [Unknown]
  - Congenital oesophageal anomaly [Unknown]
  - Premature baby [Unknown]
  - Amniotic fluid volume increased [Unknown]
  - Foetal exposure during pregnancy [Unknown]
